FAERS Safety Report 11197975 (Version 2)
Quarter: 2015Q3

REPORT INFORMATION
  Report Type: Report from Study
  Country: US (occurrence: US)
  Receive Date: 20150617
  Receipt Date: 20150903
  Transmission Date: 20151125
  Serious: Yes (Hospitalization)
  Sender: FDA-Public Use
  Company Number: US-GILEAD-2015-0158951

PATIENT
  Age: 14 Year
  Sex: Female

DRUGS (2)
  1. AZTREONAM LYSINE [Suspect]
     Active Substance: AZTREONAM LYSINE
     Indication: PSEUDOMONAS INFECTION
     Dosage: 75 MG, TID, CYCLES 2 WEEKS ON AND 2 WEEKS OFF
     Route: 055
     Dates: end: 20150503
  2. AZTREONAM LYSINE [Suspect]
     Active Substance: AZTREONAM LYSINE
     Indication: INFECTIVE PULMONARY EXACERBATION OF CYSTIC FIBROSIS
     Dosage: 75 MG, TID, CYCLES TWO WEEKS OFF AN D TWO WEEKS ON75 MG, TID
     Route: 055
     Dates: start: 201505

REACTIONS (2)
  - Rhinovirus infection [Unknown]
  - Off label use [Not Recovered/Not Resolved]
